FAERS Safety Report 6878063-3 (Version None)
Quarter: 2010Q3

REPORT INFORMATION
  Report Type: 
  Country: None (occurrence: None)
  Receive Date: 20100727
  Receipt Date: 20100722
  Transmission Date: 20110219
  Serious: Yes (Life-Threatening)
  Sender: FDA-Public Use
  Company Number: CA-B.I. PHARMACEUTICALS,INC./RIDGEFIELD-2010-CN-00470CN

PATIENT
  Age: 60 Year
  Sex: Male
  Weight: 106.36 kg

DRUGS (3)
  1. MICARDIS [Suspect]
     Dosage: 160 MG
     Route: 048
  2. GLUCOSAMINE + CHONDROITIN [Concomitant]
     Route: 065
  3. VITAMIN D [Concomitant]
     Route: 065

REACTIONS (1)
  - PROTEIN URINE PRESENT [None]
